FAERS Safety Report 5753725-X (Version None)
Quarter: 2008Q2

REPORT INFORMATION
  Report Type: 
  Country: None (occurrence: None)
  Receive Date: 20080530
  Receipt Date: 20080521
  Transmission Date: 20081010
  Serious: Yes (Other)
  Sender: FDA-Public Use
  Company Number: US-JNJFOC-20080504910

PATIENT
  Age: 57 Year
  Sex: Male

DRUGS (5)
  1. REMICADE [Suspect]
     Dosage: 4TH INFUSION
     Route: 042
  2. REMICADE [Suspect]
     Dosage: SECOND INFUSION AT WEEK 2
     Route: 042
  3. REMICADE [Suspect]
     Dosage: SECOND INFUSION AT WEEK 2
     Route: 042
  4. REMICADE [Suspect]
     Indication: RHEUMATOID ARTHRITIS
     Dosage: FIRST INFUSION
     Route: 042
  5. METHOTREXATE [Concomitant]

REACTIONS (1)
  - SARCOIDOSIS [None]
